FAERS Safety Report 24781246 (Version 2)
Quarter: 2024Q4

REPORT INFORMATION
  Report Type: Report from Study
  Country: MX (occurrence: MX)
  Receive Date: 20241227
  Receipt Date: 20241231
  Transmission Date: 20250114
  Serious: Yes (Other)
  Sender: ROCHE
  Company Number: MX-ROCHE-10000162646

PATIENT
  Sex: Male
  Weight: 87 kg

DRUGS (3)
  1. TECENTRIQ [Suspect]
     Active Substance: ATEZOLIZUMAB
     Indication: Lung cancer metastatic
     Route: 042
     Dates: start: 20241025
  2. PREDNISONE [Concomitant]
     Active Substance: PREDNISONE
     Dosage: DOSE AND FREQUENAY WERE NOT REPORTED
     Dates: start: 20241212
  3. TRAMADOL [Concomitant]
     Active Substance: TRAMADOL
     Dosage: DOSE AND FREQUENAY WERE NOT REPORTED

REACTIONS (6)
  - Aspartate aminotransferase increased [Not Recovered/Not Resolved]
  - Alanine aminotransferase increased [Not Recovered/Not Resolved]
  - Gamma-glutamyltransferase increased [Not Recovered/Not Resolved]
  - Metastases to spine [Recovering/Resolving]
  - Fatigue [Unknown]
  - Liver disorder [Recovering/Resolving]
